FAERS Safety Report 5335021-8 (Version None)
Quarter: 2007Q2

REPORT INFORMATION
  Report Type: 
  Country: None (occurrence: None)
  Receive Date: 20070525
  Receipt Date: 20070518
  Transmission Date: 20071010
  Serious: Yes (Life-Threatening)
  Sender: FDA-Public Use
  Company Number: IT-SANOFI-SYNTHELABO-A06200700244

PATIENT
  Age: 87 Year
  Sex: Female

DRUGS (2)
  1. RYTHMOL [Concomitant]
     Indication: DRUG USE FOR UNKNOWN INDICATION
     Route: 048
     Dates: start: 20040101, end: 20070101
  2. PLAVIX [Suspect]
     Indication: TRANSIENT ISCHAEMIC ATTACK
     Route: 048
     Dates: start: 20070101, end: 20070101

REACTIONS (4)
  - BRADYCARDIA [None]
  - DRUG INTERACTION [None]
  - FALL [None]
  - SYNCOPE [None]
